FAERS Safety Report 7414104-2 (Version None)
Quarter: 2011Q2

REPORT INFORMATION
  Report Type: 
  Country: None (occurrence: None)
  Receive Date: 20110411
  Receipt Date: 20110411
  Transmission Date: 20111010
  Serious: Yes (Hospitalization, Disabling, Other)
  Sender: FDA-Public Use
  Company Number: None

PATIENT
  Age: 38 Year
  Sex: Female
  Weight: 57.6068 kg

DRUGS (2)
  1. LEVAQUIN [Suspect]
     Indication: DISEASE RECURRENCE
     Dosage: ONE TABLET DAILY PO
     Route: 048
     Dates: start: 20110322, end: 20110323
  2. LEVAQUIN [Suspect]
     Indication: SINUSITIS
     Dosage: ONE TABLET DAILY PO
     Route: 048
     Dates: start: 20110322, end: 20110323

REACTIONS (13)
  - DIZZINESS [None]
  - BALANCE DISORDER [None]
  - PAIN IN EXTREMITY [None]
  - ERYTHEMA [None]
  - SENSATION OF HEAVINESS [None]
  - HYPOAESTHESIA [None]
  - RENAL PAIN [None]
  - SPEECH DISORDER [None]
  - CONVULSION [None]
  - MUSCULAR WEAKNESS [None]
  - MUSCULOSKELETAL STIFFNESS [None]
  - ACTIVITIES OF DAILY LIVING IMPAIRED [None]
  - NERVOUSNESS [None]
